FAERS Safety Report 6047077-8 (Version None)
Quarter: 2009Q1

REPORT INFORMATION
  Report Type: 
  Country: None (occurrence: None)
  Receive Date: 20090122
  Receipt Date: 20090112
  Transmission Date: 20090719
  Serious: Yes (Other)
  Sender: FDA-Public Use
  Company Number: PHEH2009US00709

PATIENT

DRUGS (1)
  1. RECLAST [Suspect]
     Indication: OSTEITIS DEFORMANS

REACTIONS (1)
  - CONVULSION [None]
